FAERS Safety Report 21921093 (Version 7)
Quarter: 2024Q1

REPORT INFORMATION
  Report Type: Spontaneous
  Country: US (occurrence: US)
  Receive Date: 20230127
  Receipt Date: 20240214
  Transmission Date: 20240410
  Serious: Yes (Hospitalization, Disabling, Other)
  Sender: FDA-Public Use
  Company Number: US-PFIZER INC-202300036161

PATIENT
  Age: 62 Year
  Sex: Male
  Weight: 87.54 kg

DRUGS (5)
  1. INLYTA [Suspect]
     Active Substance: AXITINIB
     Indication: Metastatic renal cell carcinoma
     Dosage: 5 MG, 2X/DAY
     Route: 048
     Dates: start: 202210, end: 2022
  2. INLYTA [Suspect]
     Active Substance: AXITINIB
     Dosage: 1 TAB TWICE DAILY; NUMBER OF REFILLS: 3
     Route: 048
  3. INLYTA [Suspect]
     Active Substance: AXITINIB
     Dosage: 5 MG, 2X/DAY
     Dates: start: 202210
  4. INLYTA [Suspect]
     Active Substance: AXITINIB
     Dosage: ONE PILL A DAY
  5. KEYTRUDA [Concomitant]
     Active Substance: PEMBROLIZUMAB
     Dosage: UNK
     Dates: start: 202210

REACTIONS (3)
  - Addison^s disease [Not Recovered/Not Resolved]
  - Neoplasm progression [Not Recovered/Not Resolved]
  - Intentional product misuse [Unknown]

NARRATIVE: CASE EVENT DATE: 20221225
